FAERS Safety Report 21669876 (Version 2)
Quarter: 2022Q4

REPORT INFORMATION
  Report Type: Report from Study
  Country: US (occurrence: US)
  Receive Date: 20221201
  Receipt Date: 20221208
  Transmission Date: 20230112
  Serious: Yes (Death, Other)
  Sender: FDA-Public Use
  Company Number: US-GILEAD-2022-0602766

PATIENT
  Age: 68 Year
  Sex: Female

DRUGS (4)
  1. AMBRISENTAN [Suspect]
     Active Substance: AMBRISENTAN
     Indication: Pulmonary arterial hypertension
     Dosage: 5 MG, QD
     Route: 048
     Dates: start: 20220330
  2. TYVASO [Concomitant]
     Active Substance: TREPROSTINIL
     Dosage: 48 UG
  3. TADALAFIL [Concomitant]
     Active Substance: TADALAFIL
  4. AMLODIPINE [Concomitant]
     Active Substance: AMLODIPINE BESYLATE

REACTIONS (18)
  - Oxygen saturation decreased [Recovered/Resolved]
  - Death [Fatal]
  - Dizziness [Recovered/Resolved]
  - Hypoaesthesia oral [Unknown]
  - Diarrhoea [Unknown]
  - Joint swelling [Unknown]
  - Dehydration [Unknown]
  - Gastrointestinal motility disorder [Unknown]
  - Oxygen saturation decreased [Unknown]
  - Productive cough [Unknown]
  - Abscess [Unknown]
  - Asthenia [Unknown]
  - Hypoaesthesia [Unknown]
  - Bursitis [Unknown]
  - Poor peripheral circulation [Unknown]
  - Muscular weakness [Unknown]
  - Feeling abnormal [Unknown]
  - Vision blurred [Unknown]

NARRATIVE: CASE EVENT DATE: 20221019
